FAERS Safety Report 21953255 (Version 1)
Quarter: 2023Q1

REPORT INFORMATION
  Report Type: Spontaneous
  Country: CA (occurrence: CA)
  Receive Date: 20230204
  Receipt Date: 20230204
  Transmission Date: 20230417
  Serious: Yes (Other)
  Sender: FDA-Public Use
  Company Number: None

PATIENT
  Age: 60 Year
  Sex: Female

DRUGS (7)
  1. METHOTREXATE [Suspect]
     Active Substance: METHOTREXATE
     Indication: Product used for unknown indication
     Route: 058
  2. LEFLUNOMIDE [Concomitant]
     Active Substance: LEFLUNOMIDE
     Route: 048
  3. LORAZEPAM [Concomitant]
     Active Substance: LORAZEPAM
     Route: 060
  4. LYRICA [Concomitant]
     Active Substance: PREGABALIN
     Dosage: 2 EVERY 1 DAYS
     Route: 048
  5. METFORMIN [Concomitant]
     Active Substance: METFORMIN HYDROCHLORIDE
     Dosage: 2 EVERY 1 DAYS
     Route: 048
  6. MELOXICAM [Concomitant]
     Active Substance: MELOXICAM
     Dosage: EVERY 1 DAYS
     Route: 048
  7. PREDNISONE [Concomitant]
     Active Substance: PREDNISONE
     Dosage: EVERY 1 DAYS

REACTIONS (15)
  - Abdominal discomfort [Unknown]
  - Alanine aminotransferase decreased [Unknown]
  - Discomfort [Unknown]
  - Erythema [Unknown]
  - Fatigue [Unknown]
  - Helicobacter infection [Unknown]
  - Hypertransaminasaemia [Unknown]
  - Liver disorder [Unknown]
  - Nausea [Unknown]
  - Pain [Unknown]
  - Pain in extremity [Unknown]
  - Peripheral swelling [Unknown]
  - Swelling [Unknown]
  - Treatment failure [Unknown]
  - Vomiting [Unknown]
